FAERS Safety Report 8862928 (Version 1)
Quarter: 2012Q4

REPORT INFORMATION
  Report Type: 
  Country: US (occurrence: US)
  Receive Date: 20121026
  Receipt Date: 20121026
  Transmission Date: 20130627
  Serious: No
  Sender: FDA-Public Use
  Company Number: US-ASTRAZENECA-2011SE38666

PATIENT
  Age: 64 Year
  Sex: Female

DRUGS (15)
  1. CRESTOR [Suspect]
     Route: 048
     Dates: start: 201102, end: 201102
  2. OMEPRAZOLE [Concomitant]
     Route: 048
  3. XANAX [Concomitant]
     Dosage: 0.5 MG 1-2 TABLETS TWO TIMES A DAY AS REQUIRED
     Route: 048
  4. XANAX [Concomitant]
     Dosage: 1 TAB EVERYDAY AS REQUIRED
     Route: 048
  5. RELAFIN [Concomitant]
     Route: 048
  6. ROBAXIN [Concomitant]
     Dosage: 750 MG FOUR TIMES A DAY AS REQUIRED
     Route: 048
  7. SYNTHROID [Concomitant]
     Route: 048
  8. FLUTICOSON PROPIONATE [Concomitant]
     Dosage: 50 MCG 1 SPRAY EACH NOSTRIL TWO TIMES A DAY
     Route: 045
  9. CORGARD [Concomitant]
     Route: 048
  10. AMLODIPINE [Concomitant]
     Route: 048
  11. BACID [Concomitant]
     Route: 048
  12. MUPIROCIN [Concomitant]
     Dosage: APPLY TO AFFECTED AREA THREE TIMES A DAY
  13. ANTIVERT [Concomitant]
     Dosage: 1 TABLET 6 HOURS AS REQUIRED
     Route: 048
  14. VOLTAREN [Concomitant]
     Dosage: APPLY 3 TO 4 GR TO AFFECTED AREA THREE TIMES A DAY
  15. VITAMIN B 12 [Concomitant]
     Dosage: 1CC Q WEEK x 1MONTH , THEN 1 QOWx1 MONTH, THEN Q MONTHLY

REACTIONS (7)
  - Hypersomnia [Unknown]
  - Somnolence [Unknown]
  - Multiple allergies [Unknown]
  - Sleep apnoea syndrome [Unknown]
  - Vitamin B12 deficiency [Unknown]
  - Drug hypersensitivity [Unknown]
  - Dizziness [Unknown]
